FAERS Safety Report 10203973 (Version 2)
Quarter: 2014Q2

REPORT INFORMATION
  Report Type: Spontaneous
  Country: NZ (occurrence: NZ)
  Receive Date: 20140529
  Receipt Date: 20140630
  Transmission Date: 20141212
  Serious: Yes (Hospitalization)
  Sender: FDA-Public Use
  Company Number: NZ-B.I. PHARMACEUTICALS,INC./RIDGEFIELD-2014-BI-23093AU

PATIENT
  Age: 86 Year
  Sex: Male
  Weight: 86 kg

DRUGS (13)
  1. PRADAXA [Suspect]
     Indication: ATRIAL FIBRILLATION
     Dosage: 220 MG
     Route: 065
     Dates: start: 20121018
  2. CANDESARTAN [Concomitant]
     Dosage: 32 MG
     Route: 065
  3. LACTULOSE [Concomitant]
     Dosage: DOSE PER APPLICATION: 20-40ML
     Route: 048
  4. OMEPRAZOLE [Concomitant]
     Dosage: 20 MG
     Route: 065
  5. ATORVASTATIN [Concomitant]
     Dosage: 80 MG
     Route: 065
  6. TAMSULOSIN [Concomitant]
     Dosage: 400 MG
     Route: 065
  7. BETALOC [Concomitant]
     Dosage: 95 MG
     Route: 065
  8. ALANASE [Concomitant]
     Dosage: 4 ML
     Route: 045
  9. DILTIAZEM [Concomitant]
     Dosage: 60 MG
     Route: 065
  10. BENDROFLUAZIDE [Concomitant]
     Dosage: 5 MG
     Route: 065
  11. CODEINE [Concomitant]
     Dosage: 90 MG
     Route: 065
  12. GABAPENTIN [Concomitant]
     Dosage: 300 MG
     Route: 065
  13. PARACETAMOL [Concomitant]
     Dosage: 4 G
     Route: 065

REACTIONS (1)
  - Cerebrovascular accident [Recovered/Resolved]
